FAERS Safety Report 14400541 (Version 1)
Quarter: 2018Q1

REPORT INFORMATION
  Report Type: Spontaneous
  Country: US (occurrence: US)
  Receive Date: 20180117
  Receipt Date: 20180117
  Transmission Date: 20180509
  Serious: No
  Sender: FDA-Public Use
  Company Number: US-TEVA-2018-US-845360

PATIENT
  Sex: Female

DRUGS (1)
  1. AMPHETAMINE W/DEXTROAMPHETAMINE [Suspect]
     Active Substance: AMPHETAMINE SULFATE\DEXTROAMPHETAMINE
     Indication: ATTENTION DEFICIT/HYPERACTIVITY DISORDER
     Dosage: 20 MILLIGRAM DAILY;
     Route: 065
     Dates: start: 201711

REACTIONS (6)
  - Headache [Unknown]
  - Psychomotor hyperactivity [Unknown]
  - Ocular discomfort [Unknown]
  - Feeling jittery [Unknown]
  - Head discomfort [Unknown]
  - Nervousness [Unknown]

NARRATIVE: CASE EVENT DATE: 20171223
